FAERS Safety Report 4505971-0 (Version None)
Quarter: 2004Q4

REPORT INFORMATION
  Report Type: 
  Country: None (occurrence: None)
  Receive Date: 20041025
  Receipt Date: 20040209
  Transmission Date: 20050328
  Serious: Yes (Hospitalization, Other)
  Sender: FDA-Public Use
  Company Number: US-JNJFOC-20031001148

PATIENT
  Age: 35 Year
  Sex: Female
  Weight: 57.6068 kg

DRUGS (12)
  1. REMICADE [Suspect]
     Indication: CROHN'S DISEASE
     Dosage: INTRAVENOUS
     Route: 042
     Dates: start: 20010116
  2. REMICADE [Suspect]
     Dosage: SEE IMAGE
  3. REMICADE [Suspect]
     Dosage: SEE IMAGE
  4. REMICADE [Suspect]
     Dosage: SEE IMAGE
  5. REMICADE [Suspect]
     Dosage: SEE IMAGE
  6. REMICADE [Concomitant]
     Dosage: SEE IMAGE
  7. REMICADE [Suspect]
     Dosage: SEE IMAGE
  8. REMICADE [Suspect]
     Dosage: SEE IMAGE
  9. REMICADE [Suspect]
     Dosage: SEE IMAGE
  10. REMICADE [Suspect]
     Dosage: SEE IMAGE
  11. REMICADE [Suspect]
     Dosage: SEE IMAGE
  12. MERCAPTOPURINE [Concomitant]

REACTIONS (8)
  - ARTHRALGIA [None]
  - CARPAL TUNNEL SYNDROME [None]
  - CONDITION AGGRAVATED [None]
  - CROHN'S DISEASE [None]
  - DIARRHOEA [None]
  - OBSTRUCTION [None]
  - SYSTEMIC LUPUS ERYTHEMATOSUS [None]
  - WHITE BLOOD CELL COUNT INCREASED [None]
